FAERS Safety Report 10408414 (Version 1)
Quarter: 2014Q3

REPORT INFORMATION
  Report Type: Spontaneous
  Country: US (occurrence: None)
  Receive Date: 20140825
  Receipt Date: 20140825
  Transmission Date: 20150326
  Serious: Yes (Hospitalization)
  Sender: FDA-Public Use
  Company Number: None

PATIENT
  Age: 7 Year
  Sex: Male
  Weight: 20.1 kg

DRUGS (11)
  1. CETIRIZINE [Concomitant]
     Active Substance: CETIRIZINE HYDROCHLORIDE
  2. CLOTRIMAZOLE. [Concomitant]
     Active Substance: CLOTRIMAZOLE
  3. FLUTICASONE [Concomitant]
     Active Substance: FLUTICASONE\FLUTICASONE PROPIONATE
  4. GAMMAGARD [Suspect]
     Active Substance: HUMAN IMMUNOGLOBULIN G
     Indication: HYPOGAMMAGLOBULINAEMIA
     Dosage: 4 G EVERY SATURDAY SUBCUTANEOUS
     Route: 058
  5. ALBUTEROL. [Concomitant]
     Active Substance: ALBUTEROL
  6. LINEZOLID. [Concomitant]
     Active Substance: LINEZOLID
  7. FLOVEN [Concomitant]
  8. AZELATINE [Concomitant]
  9. NYSTATIN. [Concomitant]
     Active Substance: NYSTATIN
  10. DEXTROMETHORPHAN-GUAIFENESIN [Concomitant]
  11. MONTELUKAST [Concomitant]
     Active Substance: MONTELUKAST SODIUM

REACTIONS (2)
  - Injection site reaction [None]
  - Cellulitis [None]

NARRATIVE: CASE EVENT DATE: 20140629
